FAERS Safety Report 12586723 (Version 2)
Quarter: 2016Q3

REPORT INFORMATION
  Report Type: Report from Study
  Country: US (occurrence: US)
  Receive Date: 20160725
  Receipt Date: 20160823
  Transmission Date: 20161109
  Serious: Yes (Hospitalization)
  Sender: FDA-Public Use
  Company Number: US-JNJFOC-20160716150

PATIENT
  Age: 35 Year
  Sex: Female
  Weight: 83.92 kg

DRUGS (6)
  1. SIMPONI [Suspect]
     Active Substance: GOLIMUMAB
     Indication: PROCTITIS ULCERATIVE
     Route: 058
     Dates: start: 201512, end: 201512
  2. SIMPONI [Suspect]
     Active Substance: GOLIMUMAB
     Indication: CROHN^S DISEASE
     Route: 058
     Dates: start: 201512, end: 201512
  3. SIMPONI [Suspect]
     Active Substance: GOLIMUMAB
     Indication: CROHN^S DISEASE
     Route: 058
     Dates: start: 201601
  4. SIMPONI [Suspect]
     Active Substance: GOLIMUMAB
     Indication: COLITIS ULCERATIVE
     Route: 058
     Dates: start: 201601
  5. SIMPONI [Suspect]
     Active Substance: GOLIMUMAB
     Indication: PROCTITIS ULCERATIVE
     Route: 058
     Dates: start: 201601
  6. SIMPONI [Suspect]
     Active Substance: GOLIMUMAB
     Indication: COLITIS ULCERATIVE
     Route: 058
     Dates: start: 201512, end: 201512

REACTIONS (4)
  - Haemorrhage [Unknown]
  - Off label use [Unknown]
  - Accident [Unknown]
  - Product use issue [Unknown]

NARRATIVE: CASE EVENT DATE: 201512
